FAERS Safety Report 8171889-8 (Version None)
Quarter: 2012Q1

REPORT INFORMATION
  Report Type: 
  Country: None (occurrence: None)
  Receive Date: 20120228
  Receipt Date: 20120208
  Transmission Date: 20120608
  Serious: Yes (Death)
  Sender: FDA-Public Use
  Company Number: GB-ABBOTT-12P-167-0902836-00

PATIENT
  Sex: Female
  Weight: 74 kg

DRUGS (1)
  1. HUMIRA [Suspect]
     Indication: RHEUMATOID ARTHRITIS
     Route: 058
     Dates: start: 20040715

REACTIONS (5)
  - SPINAL CORD DISORDER [None]
  - BRONCHOPNEUMONIA [None]
  - RESPIRATORY FAILURE [None]
  - CHRONIC OBSTRUCTIVE PULMONARY DISEASE [None]
  - RHEUMATOID ARTHRITIS [None]
